FAERS Safety Report 4411571-3 (Version None)
Quarter: 2004Q3

REPORT INFORMATION
  Report Type: 
  Country: None (occurrence: None)
  Receive Date: 20040727
  Receipt Date: 20040727
  Transmission Date: 20050211
  Serious: Yes (Hospitalization)
  Sender: FDA-Public Use
  Company Number: None

PATIENT
  Age: 56 Year
  Sex: Male
  Weight: 60.55 kg

DRUGS (28)
  1. CISPLATIN [Suspect]
     Indication: TONGUE NEOPLASM MALIGNANT STAGE UNSPECIFIED
     Dosage: 170 MG IV OVER 1 HR.
     Route: 042
     Dates: start: 20040616
  2. CISPLATIN [Suspect]
     Indication: TONGUE NEOPLASM MALIGNANT STAGE UNSPECIFIED
     Dosage: 170 MG IV OVER 1 HR.
     Route: 042
     Dates: start: 20040707
  3. MANNITOL [Concomitant]
  4. NORMAL SALINE SOLUTION [Concomitant]
  5. ZOFRAN [Concomitant]
  6. ALBUTEROL [Concomitant]
  7. AMITRIPTYLINE HCL [Concomitant]
  8. APAP 325/BUTALBITAL50/CAFF 40 MG [Concomitant]
  9. ASPIRIN [Concomitant]
  10. BUPROPION HCL [Concomitant]
  11. CALCIUM CARBONATE [Concomitant]
  12. CAPSAICIN [Concomitant]
  13. CYCLOBENZAPRINE HCL [Concomitant]
  14. DEXAMETHASONE [Concomitant]
  15. ENT MOUTHWASH SWISH AND SWALLOW [Concomitant]
  16. FLEXIFLO EASY FEED [Concomitant]
  17. FLUCONASOLE [Concomitant]
  18. IBUPROFEN [Concomitant]
  19. LIDOCAINE [Concomitant]
  20. LOPERAMIDE HCL [Concomitant]
  21. MULTI-VITAMIN [Concomitant]
  22. ENSURE PLUS [Concomitant]
  23. JEVITY [Concomitant]
  24. NYSTATIN [Concomitant]
  25. OXYCODONE HCL [Concomitant]
  26. RADIACARE HYDRO DRSN GEL [Concomitant]
  27. SYRING, TOOMEY  10 CC [Concomitant]
  28. ALCOHOL PREP PAD [Concomitant]

REACTIONS (6)
  - DISORIENTATION [None]
  - FEBRILE NEUTROPENIA [None]
  - HAEMOPTYSIS [None]
  - PLATELET COUNT DECREASED [None]
  - RENAL FAILURE ACUTE [None]
  - TACHYCARDIA [None]
